FAERS Safety Report 7000367-4 (Version None)
Quarter: 2010Q3

REPORT INFORMATION
  Report Type: 
  Country: None (occurrence: None)
  Receive Date: 20100920
  Receipt Date: 20100517
  Transmission Date: 20110219
  Serious: Yes (Other)
  Sender: FDA-Public Use
  Company Number: US-ASTRAZENECA-2006UW24074

PATIENT
  Sex: Male

DRUGS (5)
  1. SEROQUEL [Suspect]
     Route: 048
  2. SEROQUEL [Suspect]
     Route: 048
     Dates: start: 20030423
  3. NAVANE [Concomitant]
  4. ZYPREXA [Concomitant]
  5. TORADOL [Concomitant]

REACTIONS (4)
  - DIABETES MELLITUS [None]
  - DIABETES MELLITUS INADEQUATE CONTROL [None]
  - ERECTILE DYSFUNCTION [None]
  - VISION BLURRED [None]
